APPROVED DRUG PRODUCT: FELODIPINE
Active Ingredient: FELODIPINE
Strength: 5MG
Dosage Form/Route: TABLET, EXTENDED RELEASE;ORAL
Application: A203032 | Product #002 | TE Code: AB
Applicant: ORBION PHARMACEUTICALS PRIVATE LTD
Approved: May 21, 2015 | RLD: No | RS: No | Type: RX